FAERS Safety Report 16404383 (Version 1)
Quarter: 2019Q2

REPORT INFORMATION
  Report Type: Spontaneous
  Country: US (occurrence: US)
  Receive Date: 20190607
  Receipt Date: 20190607
  Transmission Date: 20190711
  Serious: No
  Sender: FDA-Public Use
  Company Number: US-PFIZER INC-2019241340

PATIENT
  Sex: Female

DRUGS (10)
  1. AMITRIPTYLINE [Suspect]
     Active Substance: AMITRIPTYLINE
     Dosage: UNK
  2. CODEINE PHOSPHATE [Suspect]
     Active Substance: CODEINE PHOSPHATE
     Dosage: UNK
  3. ASA [Suspect]
     Active Substance: ASPIRIN
     Dosage: UNK
  4. BENZYLPENICILLIN POTASSIUM [Suspect]
     Active Substance: PENICILLIN G POTASSIUM
     Dosage: UNK
  5. TETRACYCLINE HCL [Suspect]
     Active Substance: TETRACYCLINE HYDROCHLORIDE
     Dosage: UNK
  6. CLINDAMYCIN HCL [Suspect]
     Active Substance: CLINDAMYCIN HYDROCHLORIDE
     Dosage: UNK
  7. ASPIRIN [ACETYLSALICYLIC ACID] [Suspect]
     Active Substance: ASPIRIN
     Dosage: UNK
  8. CEFDINIR. [Suspect]
     Active Substance: CEFDINIR
     Dosage: UNK
  9. ACETAMINOPHEN;CODEINE [Suspect]
     Active Substance: ACETAMINOPHEN\CODEINE PHOSPHATE
     Dosage: UNK
  10. DOXYCYCLINE HYCLATE. [Suspect]
     Active Substance: DOXYCYCLINE HYCLATE
     Dosage: UNK

REACTIONS (1)
  - Drug hypersensitivity [Unknown]
